FAERS Safety Report 8402723-6 (Version None)
Quarter: 2012Q2

REPORT INFORMATION
  Report Type: 
  Country: None (occurrence: None)
  Receive Date: 20120601
  Receipt Date: 20120518
  Transmission Date: 20120825
  Serious: Yes (Other)
  Sender: FDA-Public Use
  Company Number: US-ROCHE-1073650

PATIENT

DRUGS (2)
  1. MABTHERA [Suspect]
     Indication: CHRONIC LYMPHOCYTIC LEUKAEMIA
     Dosage: 8 DOSES
  2. CAL-101 (PI3K DELTA INHIBITOR) [Suspect]
     Indication: CHRONIC LYMPHOCYTIC LEUKAEMIA
     Dosage: DAY 1

REACTIONS (5)
  - PNEUMONIA [None]
  - THROMBOCYTOPENIA [None]
  - NEUTROPENIA [None]
  - FEBRILE NEUTROPENIA [None]
  - TRANSAMINASES INCREASED [None]
